FAERS Safety Report 24403161 (Version 1)
Quarter: 2024Q4

REPORT INFORMATION
  Report Type: Spontaneous
  Country: US (occurrence: US)
  Receive Date: 20241007
  Receipt Date: 20241007
  Transmission Date: 20250114
  Serious: No
  Sender: ROCHE
  Company Number: US-ROCHE-3460334

PATIENT
  Sex: Female

DRUGS (1)
  1. GAZYVA [Suspect]
     Active Substance: OBINUTUZUMAB
     Indication: B-cell lymphoma
     Dosage: LAST DOSE OF GAZYVA WAS ADMINISTERED ON 25/OCT/2023
     Route: 042
     Dates: start: 202307

REACTIONS (3)
  - Blood bilirubin increased [Not Recovered/Not Resolved]
  - Transaminases increased [Not Recovered/Not Resolved]
  - Off label use [Unknown]

NARRATIVE: CASE EVENT DATE: 20230701
